FAERS Safety Report 5085285-3 (Version None)
Quarter: 2006Q3

REPORT INFORMATION
  Report Type: 
  Country: None (occurrence: None)
  Receive Date: 20060817
  Receipt Date: 20060804
  Transmission Date: 20061208
  Serious: Yes (Hospitalization, Other)
  Sender: FDA-Public Use
  Company Number: 2005081800

PATIENT
  Age: 63 Year
  Sex: Male
  Weight: 68.0396 kg

DRUGS (5)
  1. BEXTRA [Suspect]
     Indication: ARTHRITIS
     Dosage: UNK (10MG, UNKNOWN)
     Dates: start: 20030116
  2. VIOXX [Suspect]
     Indication: ILL-DEFINED DISORDER
  3. ASPIRIN [Concomitant]
  4. LOSARTAN POSTASSIUM [Concomitant]
  5. ZOCOR [Concomitant]

REACTIONS (10)
  - CEREBROVASCULAR ACCIDENT [None]
  - CHRONIC OBSTRUCTIVE PULMONARY DISEASE [None]
  - DIARRHOEA HAEMORRHAGIC [None]
  - HERNIA REPAIR [None]
  - INTERVERTEBRAL DISC OPERATION [None]
  - PNEUMONIA [None]
  - THROMBOSIS [None]
  - TRANSIENT ISCHAEMIC ATTACK [None]
  - VENOUS ANGIOMA OF BRAIN [None]
  - VERTEBRAL ARTERY STENOSIS [None]
